FAERS Safety Report 12582931 (Version 1)
Quarter: 2016Q3

REPORT INFORMATION
  Report Type: Spontaneous
  Country: FR (occurrence: FR)
  Receive Date: 20160722
  Receipt Date: 20160722
  Transmission Date: 20161109
  Serious: Yes (Hospitalization)
  Sender: FDA-Public Use
  Company Number: FR-ABBVIE-16K-056-1676452-00

PATIENT
  Age: 30 Year
  Sex: Male

DRUGS (1)
  1. HUMIRA [Suspect]
     Active Substance: ADALIMUMAB
     Indication: CROHN^S DISEASE
     Route: 058
     Dates: start: 201509, end: 20160621

REACTIONS (7)
  - Thunderclap headache [Recovered/Resolved]
  - CSF protein increased [Unknown]
  - Cerebral artery stenosis [Unknown]
  - Reversible cerebral vasoconstriction syndrome [Unknown]
  - Ultrasound Doppler abnormal [Unknown]
  - Opiates positive [Unknown]
  - Headache [Unknown]

NARRATIVE: CASE EVENT DATE: 201606
